FAERS Safety Report 16794231 (Version 1)
Quarter: 2019Q3

REPORT INFORMATION
  Report Type: Spontaneous
  Country: US (occurrence: US)
  Receive Date: 20190911
  Receipt Date: 20190911
  Transmission Date: 20191005
  Serious: No
  Sender: FDA-Public Use
  Company Number: US-ROCHE-2269485

PATIENT
  Age: 57 Year
  Sex: Male
  Weight: 78.7 kg

DRUGS (3)
  1. MORPHINE [Concomitant]
     Active Substance: MORPHINE
     Dosage: TAKING LONG-TERM
     Route: 065
  2. OXYCODONE [Concomitant]
     Active Substance: OXYCODONE
     Dosage: TAKING LONG-TERM
     Route: 065
  3. ALECENSA [Suspect]
     Active Substance: ALECTINIB HYDROCHLORIDE
     Indication: CELL MARKER INCREASED
     Route: 048
     Dates: start: 201902

REACTIONS (1)
  - Rash [Not Recovered/Not Resolved]

NARRATIVE: CASE EVENT DATE: 201902
